FAERS Safety Report 7529239-3 (Version None)
Quarter: 2011Q2

REPORT INFORMATION
  Report Type: 
  Country: None (occurrence: None)
  Receive Date: 20110607
  Receipt Date: 20050606
  Transmission Date: 20111010
  Serious: Yes (Death)
  Sender: FDA-Public Use
  Company Number: PHHO2005CA04974

PATIENT
  Sex: Male

DRUGS (5)
  1. CLOZARIL [Suspect]
     Dosage: UNK
     Dates: start: 19960412
  2. LORAZEPAM [Concomitant]
     Dosage: UNK
  3. NITROGLYCERIN SPRAY [Concomitant]
     Dosage: UNK
  4. RANITIDINE [Concomitant]
     Dosage: UNK
  5. PRAVACHOL [Concomitant]
     Dosage: UNK

REACTIONS (1)
  - NEOPLASM MALIGNANT [None]
